FAERS Safety Report 5229608-0 (Version None)
Quarter: 2007Q1

REPORT INFORMATION
  Report Type: 
  Country: None (occurrence: None)
  Receive Date: 20070201
  Receipt Date: 20070123
  Transmission Date: 20070707
  Serious: Yes (Hospitalization)
  Sender: FDA-Public Use
  Company Number: 2007-00301

PATIENT
  Age: 33 Year
  Sex: Female

DRUGS (6)
  1. FERRLECIT [Suspect]
     Indication: IRON DEFICIENCY ANAEMIA
     Dosage: 125 MG, SINGLE OVER 1 HOUR, INTRAVENOUS
     Route: 042
     Dates: start: 20070122, end: 20070122
  2. FLOVENT [Concomitant]
  3. ALBUTEROL [Concomitant]
  4. FENTANYL [Concomitant]
  5. DILAUDID [Concomitant]
  6. ORAL CONTRACEPTIVE NOS (ORAL CONTRACEPTIVE NOS) [Concomitant]

REACTIONS (9)
  - BURNING SENSATION [None]
  - CELLULITIS [None]
  - COMPARTMENT SYNDROME [None]
  - HYPOAESTHESIA [None]
  - HYPOKINESIA [None]
  - INJECTION SITE EXTRAVASATION [None]
  - OEDEMA PERIPHERAL [None]
  - PAIN IN EXTREMITY [None]
  - PARAESTHESIA [None]
